FAERS Safety Report 20560347 (Version 2)
Quarter: 2022Q1

REPORT INFORMATION
  Report Type: Report from Study
  Country: US (occurrence: US)
  Receive Date: 20220307
  Receipt Date: 20220311
  Transmission Date: 20220423
  Serious: Yes (Hospitalization)
  Sender: FDA-Public Use
  Company Number: US-MYLANLABS-2022M1016336

PATIENT

DRUGS (2)
  1. CLOZAPINE [Suspect]
     Active Substance: CLOZAPINE
     Indication: Product used for unknown indication
     Dosage: 150 MILLIGRAM, AM
     Dates: end: 20220224
  2. CLOZAPINE [Suspect]
     Active Substance: CLOZAPINE
     Dosage: 150 MILLIGRAM, PM
     Dates: end: 20220224

REACTIONS (4)
  - Hospitalisation [Unknown]
  - Malaise [Unknown]
  - Abnormal behaviour [Unknown]
  - Product dose omission issue [Unknown]
